FAERS Safety Report 9559930 (Version 2)
Quarter: 2013Q4

REPORT INFORMATION
  Report Type: Spontaneous
  Country: US (occurrence: US)
  Receive Date: 20130927
  Receipt Date: 20131021
  Transmission Date: 20140711
  Serious: No
  Sender: FDA-Public Use
  Company Number: US-PFIZER INC-2013274108

PATIENT
  Age: 64 Year
  Sex: Female
  Weight: 72.6 kg

DRUGS (5)
  1. FLECTOR [Suspect]
     Indication: NECK PAIN
     Dosage: UNK,1X/DAY
     Route: 062
     Dates: start: 20130920, end: 20130921
  2. FLECTOR [Suspect]
     Indication: MUSCULOSKELETAL PAIN
  3. FLECTOR [Suspect]
     Indication: MYOSITIS
  4. FLECTOR [Suspect]
     Indication: INFLAMMATION
  5. FLECTOR [Suspect]
     Indication: MUSCLE INJURY

REACTIONS (3)
  - Drug effect incomplete [Unknown]
  - Neck pain [Not Recovered/Not Resolved]
  - Musculoskeletal pain [Not Recovered/Not Resolved]
